FAERS Safety Report 6475517-9 (Version None)
Quarter: 2009Q4

REPORT INFORMATION
  Report Type: 
  Country: None (occurrence: None)
  Receive Date: 20091204
  Receipt Date: 20091130
  Transmission Date: 20100525
  Serious: Yes (Other)
  Sender: FDA-Public Use
  Company Number: PHHY2009FR52805

PATIENT
  Sex: Female

DRUGS (1)
  1. FEMARA [Suspect]
     Indication: BREAST CANCER
     Route: 048

REACTIONS (4)
  - COLITIS [None]
  - DIARRHOEA [None]
  - PAIN [None]
  - SCAN ABDOMEN ABNORMAL [None]
